FAERS Safety Report 7954146-1 (Version None)
Quarter: 2011Q4

REPORT INFORMATION
  Report Type: 
  Country: None (occurrence: None)
  Receive Date: 20111202
  Receipt Date: 20111125
  Transmission Date: 20120403
  Serious: Yes (Other)
  Sender: FDA-Public Use
  Company Number: JP-AMGEN-JPNSP2011063340

PATIENT
  Sex: Female

DRUGS (3)
  1. ENBREL [Suspect]
     Indication: PRODUCT USED FOR UNKNOWN INDICATION
     Dosage: 25 MG, WEEKLY
     Route: 058
     Dates: start: 20110601
  2. RHEUMATREX [Suspect]
     Dosage: UNK UNK, UNK
  3. ALLERGY MEDICATION [Concomitant]
     Dosage: UNK UNK, UNK

REACTIONS (4)
  - LOSS OF CONSCIOUSNESS [None]
  - PRURITUS GENERALISED [None]
  - DYSPNOEA [None]
  - RASH GENERALISED [None]
